FAERS Safety Report 7501907-9 (Version None)
Quarter: 2011Q2

REPORT INFORMATION
  Report Type: 
  Country: None (occurrence: None)
  Receive Date: 20110525
  Receipt Date: 20110519
  Transmission Date: 20111010
  Serious: Yes (Death, Hospitalization, Other)
  Sender: FDA-Public Use
  Company Number: JP-JNJFOC-20101201031

PATIENT
  Sex: Female
  Weight: 58 kg

DRUGS (9)
  1. DOXORUBICIN HCL [Suspect]
     Route: 042
     Dates: start: 20100205, end: 20100205
  2. DOXORUBICIN HCL [Suspect]
     Route: 042
     Dates: start: 20100525, end: 20100525
  3. DOXORUBICIN HCL [Suspect]
     Route: 042
     Dates: start: 20100629, end: 20100629
  4. DOXORUBICIN HCL [Suspect]
     Route: 042
     Dates: start: 20100319, end: 20100319
  5. DOXORUBICIN HCL [Suspect]
     Indication: OVARIAN CANCER RECURRENT
     Route: 042
     Dates: start: 20100107, end: 20100107
  6. DOXORUBICIN HCL [Suspect]
     Route: 042
     Dates: start: 20100305, end: 20100305
  7. DOXORUBICIN HCL [Suspect]
     Route: 042
     Dates: start: 20100727, end: 20100727
  8. DOXORUBICIN HCL [Suspect]
     Route: 042
     Dates: start: 20100824, end: 20100824
  9. DOXORUBICIN HCL [Suspect]
     Route: 042
     Dates: start: 20091204, end: 20091204

REACTIONS (8)
  - OVARIAN CANCER RECURRENT [None]
  - EXTRAVASATION [None]
  - ERYTHEMA [None]
  - SKIN NECROSIS [None]
  - PLATELET COUNT DECREASED [None]
  - FEELING HOT [None]
  - FEBRILE NEUTROPENIA [None]
  - SKIN EROSION [None]
